FAERS Safety Report 13768563 (Version 2)
Quarter: 2017Q4

REPORT INFORMATION
  Report Type: Report from Study
  Country: US (occurrence: US)
  Receive Date: 20170719
  Receipt Date: 20171120
  Transmission Date: 20180320
  Serious: Yes (Hospitalization, Other)
  Sender: FDA-Public Use
  Company Number: US-WEST-WARD PHARMACEUTICALS CORP.-US-H14001-17-02402

PATIENT
  Sex: Female

DRUGS (3)
  1. DOLUTEGRAVIR [Interacting]
     Active Substance: DOLUTEGRAVIR
     Indication: LATENT TUBERCULOSIS
     Route: 065
  2. RIFAPENTINE [Suspect]
     Active Substance: RIFAPENTINE
     Indication: LATENT TUBERCULOSIS
     Route: 065
  3. ISONIAZID. [Suspect]
     Active Substance: ISONIAZID
     Indication: LATENT TUBERCULOSIS
     Route: 065

REACTIONS (5)
  - Influenza like illness [Recovered/Resolved]
  - Bilirubin conjugated increased [Recovered/Resolved]
  - Transaminases increased [Recovered/Resolved]
  - Drug interaction [Recovered/Resolved]
  - Lymphocyte count decreased [Recovered/Resolved]
